FAERS Safety Report 8155926-2 (Version None)
Quarter: 2012Q1

REPORT INFORMATION
  Report Type: 
  Country: None (occurrence: None)
  Receive Date: 20120221
  Receipt Date: 20120221
  Transmission Date: 20120608
  Serious: Yes (Life-Threatening)
  Sender: FDA-Public Use
  Company Number: None

PATIENT
  Sex: Female
  Weight: 23.587 kg

DRUGS (4)
  1. NUCYNTA [Suspect]
     Indication: HIP ARTHROPLASTY
     Dosage: ONE 3 TIMES DAILY
     Dates: start: 20111228, end: 20111229
  2. NUCYNTA [Suspect]
     Indication: CHONDROPATHY
     Dosage: ONE 3 TIMES DAILY
     Dates: start: 20111228, end: 20111229
  3. SPIRYA [Concomitant]
  4. DULERA ORAL INHALATION [Concomitant]

REACTIONS (4)
  - DIZZINESS [None]
  - SLEEP DISORDER [None]
  - PHOTOPSIA [None]
  - LOSS OF CONSCIOUSNESS [None]
